FAERS Safety Report 7879040-6 (Version None)
Quarter: 2011Q4

REPORT INFORMATION
  Report Type: 
  Country: None (occurrence: None)
  Receive Date: 20111025
  Receipt Date: 20110728
  Transmission Date: 20120403
  Serious: Yes (Other)
  Sender: FDA-Public Use
  Company Number: 2011BH024755

PATIENT

DRUGS (1)
  1. ADVATE [Suspect]
     Indication: HAEMOPHILIA

REACTIONS (1)
  - FACTOR VIII INHIBITION [None]
